FAERS Safety Report 4425456-X (Version None)
Quarter: 2004Q3

REPORT INFORMATION
  Report Type: 
  Country: None (occurrence: None)
  Receive Date: 20040813
  Receipt Date: 20040804
  Transmission Date: 20050211
  Serious: Yes (Other)
  Sender: FDA-Public Use
  Company Number: FR-ROCHE-376632

PATIENT
  Sex: Female
  Weight: 2.6 kg

DRUGS (6)
  1. INVIRASE [Suspect]
     Indication: DRUG USE FOR UNKNOWN INDICATION
     Dates: start: 20001015
  2. COMBIVIR [Suspect]
     Indication: DRUG USE FOR UNKNOWN INDICATION
     Dates: start: 20040419
  3. EPIVIR [Suspect]
     Indication: DRUG USE FOR UNKNOWN INDICATION
     Dates: start: 20001015, end: 20040419
  4. NORVIR [Suspect]
     Indication: DRUG USE FOR UNKNOWN INDICATION
     Dates: start: 20030115
  5. ACIDE FOLIQUE [Suspect]
     Indication: DRUG USE FOR UNKNOWN INDICATION
     Dates: start: 20030115
  6. TARDYFERON [Suspect]
     Indication: DRUG USE FOR UNKNOWN INDICATION
     Dates: start: 20040115

REACTIONS (8)
  - ALPHA 1 FOETOPROTEIN INCREASED [None]
  - CAESAREAN SECTION [None]
  - CONGENITAL ANOMALY [None]
  - DRUG EXPOSURE DURING PREGNANCY [None]
  - INFARCTION [None]
  - INTRA-UTERINE DEATH [None]
  - PLACENTAL DISORDER [None]
  - SMALL FOR DATES BABY [None]
